FAERS Safety Report 10365310 (Version 1)
Quarter: 2014Q3

REPORT INFORMATION
  Report Type: Spontaneous
  Country: US (occurrence: None)
  Receive Date: 20140804
  Receipt Date: 20140804
  Transmission Date: 20150326
  Serious: Yes (Disabling)
  Sender: FDA-Public Use
  Company Number: None

PATIENT
  Age: 20 Year
  Sex: Female
  Weight: 63.5 kg

DRUGS (1)
  1. LEVAQUIN [Suspect]
     Active Substance: LEVOFLOXACIN
     Indication: LYME DISEASE
     Dates: start: 20140616, end: 20140723

REACTIONS (10)
  - Discomfort [None]
  - Arthralgia [None]
  - Neck pain [None]
  - Paraesthesia [None]
  - Dizziness [None]
  - Back pain [None]
  - Peripheral swelling [None]
  - Burning sensation [None]
  - Tendon pain [None]
  - Muscular weakness [None]

NARRATIVE: CASE EVENT DATE: 20140803
